FAERS Safety Report 4955992-9 (Version None)
Quarter: 2006Q1

REPORT INFORMATION
  Report Type: 
  Country: None (occurrence: None)
  Receive Date: 20060201
  Receipt Date: 20051018
  Transmission Date: 20060701
  Serious: No
  Sender: FDA-Public Use
  Company Number: FACT0500628

PATIENT
  Age: 29 Year
  Sex: Female
  Weight: 59 kg

DRUGS (3)
  1. FACTIVE [Suspect]
     Indication: RESPIRATORY TRACT INFECTION BACTERIAL
     Dosage: 320 MG QD ORAL
     Route: 048
     Dates: start: 20051017, end: 20051017
  2. DOXYCYCLINE [Suspect]
     Indication: PNEUMONIA
     Dosage: BID
  3. YASMIN(DROSPIRONE,ETHINYLESTRADIOL) [Concomitant]

REACTIONS (1)
  - RASH [None]
